FAERS Safety Report 9179984 (Version 2)
Quarter: 2013Q2

REPORT INFORMATION
  Report Type: Spontaneous
  Country: ZA (occurrence: ZA)
  Receive Date: 20130321
  Receipt Date: 20130405
  Transmission Date: 20140414
  Serious: Yes (Hospitalization, Other)
  Sender: FDA-Public Use
  Company Number: ZA-ABBOTT-13P-143-1064982-00

PATIENT
  Age: 16 Year
  Sex: Female

DRUGS (1)
  1. HUMIRA [Suspect]
     Indication: CROHN^S DISEASE
     Dosage: WK0=160MG?WK2=80MG?WK4 ONWARDS=40MG EOW
     Route: 058
     Dates: start: 201207, end: 20130323

REACTIONS (10)
  - Fall [Unknown]
  - Hyperpyrexia [Recovered/Resolved]
  - Visual acuity reduced [Unknown]
  - Local swelling [Unknown]
  - Haematochezia [Unknown]
  - Blood urine present [Unknown]
  - Soft tissue disorder [Recovered/Resolved]
  - Colitis ulcerative [Unknown]
  - Drug ineffective [Unknown]
  - Skin lesion [Recovered/Resolved]
